FAERS Safety Report 9466444 (Version 2)
Quarter: 2013Q3

REPORT INFORMATION
  Report Type: Spontaneous
  Country: US (occurrence: US)
  Receive Date: 20130820
  Receipt Date: 20130823
  Transmission Date: 20140515
  Serious: Yes (Death, Hospitalization, Other)
  Sender: FDA-Public Use
  Company Number: US-ASTRAZENECA-2013SE64144

PATIENT
  Age: 59 Year
  Sex: Female

DRUGS (2)
  1. BRILINTA [Suspect]
     Route: 048
     Dates: start: 20130813
  2. ASPIRIN [Concomitant]

REACTIONS (3)
  - Gastrointestinal haemorrhage [Fatal]
  - Inflammatory bowel disease [Fatal]
  - Abdominal pain [Unknown]
